FAERS Safety Report 6888835-7 (Version None)
Quarter: 2010Q3

REPORT INFORMATION
  Report Type: 
  Country: None (occurrence: None)
  Receive Date: 20100730
  Receipt Date: 20071113
  Transmission Date: 20110219
  Serious: No
  Sender: FDA-Public Use
  Company Number: US-PFIZER INC-2007096230

PATIENT
  Sex: Female

DRUGS (3)
  1. LIPITOR [Suspect]
     Indication: BLOOD CHOLESTEROL INCREASED
  2. FOSAMAX [Concomitant]
     Indication: OSTEOPOROSIS PROPHYLAXIS
  3. VITAMINS [Concomitant]

REACTIONS (1)
  - ARTHRALGIA [None]
